FAERS Safety Report 7000233-4 (Version None)
Quarter: 2010Q3

REPORT INFORMATION
  Report Type: 
  Country: None (occurrence: None)
  Receive Date: 20100920
  Receipt Date: 20070702
  Transmission Date: 20110219
  Serious: Yes (Other)
  Sender: FDA-Public Use
  Company Number: US-ASTRAZENECA-2006UW26701

PATIENT
  Age: 50 Year
  Sex: Male
  Weight: 110.2 kg

DRUGS (17)
  1. SEROQUEL [Suspect]
     Indication: BIPOLAR DISORDER
     Dosage: 50 TO 100 MG (1/2-1)  AND 25 MG THREE TIMES A DAY
     Route: 048
     Dates: start: 20040427, end: 20041123
  2. SEROQUEL [Suspect]
     Indication: DEPRESSION
     Dosage: 50 TO 100 MG (1/2-1)  AND 25 MG THREE TIMES A DAY
     Route: 048
     Dates: start: 20040427, end: 20041123
  3. SEROQUEL [Suspect]
     Indication: SLEEP DISORDER
     Dosage: 50 TO 100 MG (1/2-1)  AND 25 MG THREE TIMES A DAY
     Route: 048
     Dates: start: 20040427, end: 20041123
  4. SEROQUEL [Suspect]
     Indication: AFFECTIVE DISORDER
     Dosage: 50 TO 100 MG (1/2-1)  AND 25 MG THREE TIMES A DAY
     Route: 048
     Dates: start: 20040427, end: 20041123
  5. SEROQUEL [Suspect]
     Indication: ANXIETY
     Dosage: 50 TO 100 MG (1/2-1)  AND 25 MG THREE TIMES A DAY
     Route: 048
     Dates: start: 20040427, end: 20041123
  6. RISPERDAL [Concomitant]
  7. PROZAC [Concomitant]
     Indication: POST-TRAUMATIC STRESS DISORDER
     Dosage: 40-80 MG EVERY DAY
     Route: 048
     Dates: start: 19920101
  8. PROZAC [Concomitant]
     Indication: DEPRESSION
     Dosage: 40-80 MG EVERY DAY
     Route: 048
     Dates: start: 19920101
  9. PROZAC [Concomitant]
     Indication: ANXIETY
     Dosage: 40-80 MG EVERY DAY
     Route: 048
     Dates: start: 19920101
  10. TIAZAC [Concomitant]
     Indication: HEART RATE
     Route: 048
     Dates: start: 20020101
  11. TIAZAC [Concomitant]
     Indication: BLOOD PRESSURE
     Route: 048
     Dates: start: 20020101
  12. KLONOPIN [Concomitant]
     Dates: start: 20040101
  13. DEPAKOTE [Concomitant]
     Route: 048
     Dates: start: 20050101
  14. HALDOL [Concomitant]
     Route: 048
     Dates: start: 20050101
  15. NEURONTIN [Concomitant]
     Indication: AFFECTIVE DISORDER
     Route: 048
     Dates: start: 20040101
  16. DICLOFENAC [Concomitant]
     Indication: ARTHRALGIA
     Route: 048
     Dates: start: 20040101
  17. METOPROLOL [Concomitant]
     Indication: BLOOD PRESSURE
     Dosage: 50-100 MG
     Route: 048
     Dates: start: 20000101

REACTIONS (5)
  - DIABETES MELLITUS [None]
  - DIABETES MELLITUS INADEQUATE CONTROL [None]
  - HYPERGLYCAEMIA [None]
  - TYPE 1 DIABETES MELLITUS [None]
  - TYPE 2 DIABETES MELLITUS [None]
